FAERS Safety Report 23195864 (Version 1)
Quarter: 2023Q4

REPORT INFORMATION
  Report Type: Report from Study
  Country: US (occurrence: US)
  Receive Date: 20231117
  Receipt Date: 20231117
  Transmission Date: 20240110
  Serious: Yes (Other)
  Sender: FDA-Public Use
  Company Number: US-ALXN-202311USA000926US

PATIENT
  Sex: Male

DRUGS (1)
  1. STRENSIQ [Suspect]
     Active Substance: ASFOTASE ALFA
     Indication: Product used for unknown indication
     Dosage: 1.75 MILLIGRAM/KILOGRAM, TIW
     Route: 065

REACTIONS (10)
  - Epiphyses premature fusion [Unknown]
  - Weight increased [Unknown]
  - Dental caries [Unknown]
  - Tooth discolouration [Unknown]
  - Tooth loss [Unknown]
  - Laboratory test abnormal [Unknown]
  - Injection site discolouration [Unknown]
  - Injection site mass [Unknown]
  - Injection site erythema [Unknown]
  - Injection site atrophy [Unknown]

NARRATIVE: CASE EVENT DATE: 20230301
